FAERS Safety Report 14179255 (Version 3)
Quarter: 2017Q4

REPORT INFORMATION
  Report Type: Report from Study
  Country: ES (occurrence: ES)
  Receive Date: 20171110
  Receipt Date: 20171208
  Transmission Date: 20180321
  Serious: Yes (Other)
  Sender: FDA-Public Use
  Company Number: ES-JNJFOC-20171106355

PATIENT
  Age: 74 Year
  Sex: Female
  Weight: 71 kg

DRUGS (3)
  1. SIMPONI [Suspect]
     Active Substance: GOLIMUMAB
     Indication: PSORIATIC ARTHROPATHY
     Route: 058
     Dates: start: 20131003
  2. NAPROXEN. [Suspect]
     Active Substance: NAPROXEN
     Indication: ANTIINFLAMMATORY THERAPY
     Route: 065
     Dates: end: 20140923
  3. NAPROXEN. [Suspect]
     Active Substance: NAPROXEN
     Indication: PAIN PROPHYLAXIS
     Route: 065
     Dates: end: 20140923

REACTIONS (4)
  - Humerus fracture [Unknown]
  - Iron deficiency anaemia [Unknown]
  - Helicobacter gastritis [Recovered/Resolved]
  - Fall [Unknown]

NARRATIVE: CASE EVENT DATE: 20150113
